FAERS Safety Report 25897427 (Version 1)
Quarter: 2025Q4

REPORT INFORMATION
  Report Type: Spontaneous
  Country: US (occurrence: US)
  Receive Date: 20251008
  Receipt Date: 20251008
  Transmission Date: 20260117
  Serious: Yes (Life-Threatening, Hospitalization, Other)
  Sender: GLAND PHARMA LTD
  Company Number: US-GLANDPHARMA-US-2025GLNLIT01949

PATIENT
  Age: 74 Year
  Sex: Male

DRUGS (2)
  1. ROPIVACAINE HYDROCHLORIDE [Suspect]
     Active Substance: ROPIVACAINE HYDROCHLORIDE
     Indication: Anaesthesia
     Route: 065
  2. ROPIVACAINE HYDROCHLORIDE [Suspect]
     Active Substance: ROPIVACAINE HYDROCHLORIDE
     Route: 065

REACTIONS (16)
  - Local anaesthetic systemic toxicity [Unknown]
  - Acute kidney injury [Unknown]
  - Hyperkalaemia [Unknown]
  - Shock [Unknown]
  - Distributive shock [Unknown]
  - Condition aggravated [Unknown]
  - Somnolence [Unknown]
  - Respiratory acidosis [Unknown]
  - Metabolic acidosis [Unknown]
  - Hypotension [Recovered/Resolved]
  - Hypoaesthesia [Recovered/Resolved]
  - Hypoaesthesia oral [Recovered/Resolved]
  - Atelectasis [Unknown]
  - Bundle branch block right [Unknown]
  - Acidosis [Unknown]
  - Chest pain [Unknown]
